FAERS Safety Report 16499953 (Version 1)
Quarter: 2019Q3

REPORT INFORMATION
  Report Type: Spontaneous
  Country: US (occurrence: US)
  Receive Date: 20190701
  Receipt Date: 20190701
  Transmission Date: 20191004
  Serious: No
  Sender: FDA-Public Use
  Company Number: US-ALEMBIC PHARMACUETICALS LIMITED-2019SCAL000385

PATIENT

DRUGS (1)
  1. MEPROBAMATE. [Suspect]
     Active Substance: MEPROBAMATE
     Indication: ANXIETY
     Dosage: 200 MILLIGRAM, TABLET (STOPPED ON 09-JUN-2019)
     Route: 048

REACTIONS (5)
  - Lacrimation increased [Not Recovered/Not Resolved]
  - Product taste abnormal [Not Recovered/Not Resolved]
  - Headache [Not Recovered/Not Resolved]
  - Retching [Not Recovered/Not Resolved]
  - Product odour abnormal [Not Recovered/Not Resolved]

NARRATIVE: CASE EVENT DATE: 20190611
